FAERS Safety Report 4852560-4 (Version None)
Quarter: 2005Q4

REPORT INFORMATION
  Report Type: 
  Country: None (occurrence: None)
  Receive Date: 20051123
  Receipt Date: 20050801
  Transmission Date: 20060501
  Serious: Yes (Hospitalization)
  Sender: FDA-Public Use
  Company Number: 05USA0165

PATIENT
  Age: 62 Year
  Sex: Male

DRUGS (3)
  1. GLIADEL [Suspect]
     Indication: GLIOBLASTOMA MULTIFORME
     Dates: start: 20050201
  2. HYDROCORTISONE [Concomitant]
  3. TEMOZOLOMIDE [Concomitant]

REACTIONS (2)
  - HEADACHE [None]
  - HYDROCEPHALUS [None]
